FAERS Safety Report 9966061 (Version 1)
Quarter: 2014Q1

REPORT INFORMATION
  Report Type: Report from Study
  Country: US (occurrence: US)
  Receive Date: 20140305
  Receipt Date: 20140305
  Transmission Date: 20141002
  Serious: No
  Sender: FDA-Public Use
  Company Number: US-ABBVIE-13P-163-1122119-00

PATIENT
  Age: 48 Year
  Sex: Female

DRUGS (13)
  1. HUMIRA [Suspect]
     Indication: COLITIS ULCERATIVE
     Dates: start: 20130420
  2. PREDNISONE [Concomitant]
     Indication: PRODUCT USED FOR UNKNOWN INDICATION
     Dosage: 5 MG DAILY
     Route: 048
  3. PREDNISONE [Concomitant]
     Dosage: TAPER DOWN 10MG/6DAYS
  4. TRAMADOL [Concomitant]
     Indication: PAIN
     Dosage: ONCE EVERY 6 HOURS
  5. TYLENOL [Concomitant]
     Indication: PAIN
     Dosage: ONCE EVERY 6 HOURS
  6. MULTIVITAMIN [Concomitant]
     Indication: PRODUCT USED FOR UNKNOWN INDICATION
  7. CALCIUM SUPPLIMENTS [Concomitant]
     Indication: PRODUCT USED FOR UNKNOWN INDICATION
  8. MIRALAX [Concomitant]
     Indication: PRODUCT USED FOR UNKNOWN INDICATION
     Dosage: AS REQUIRED
  9. AZATHIOPRINE [Concomitant]
     Indication: PRODUCT USED FOR UNKNOWN INDICATION
  10. AZATHIOPRINE [Concomitant]
     Dosage: 100 MG DAILY
  11. ASACOL HD [Concomitant]
     Indication: PRODUCT USED FOR UNKNOWN INDICATION
     Dosage: 6 A DAY
  12. DELZICOL [Concomitant]
     Indication: PRODUCT USED FOR UNKNOWN INDICATION
     Dosage: 12 A DAY
  13. COLON HEALTH [Concomitant]
     Indication: PRODUCT USED FOR UNKNOWN INDICATION
     Dosage: AS REQUIRED

REACTIONS (3)
  - Mucous stools [Recovering/Resolving]
  - Haematochezia [Recovering/Resolving]
  - Colitis ulcerative [Unknown]
